FAERS Safety Report 8590625-4 (Version None)
Quarter: 2012Q3

REPORT INFORMATION
  Report Type: 
  Country: None (occurrence: None)
  Receive Date: 20120813
  Receipt Date: 20120806
  Transmission Date: 20120928
  Serious: Yes (Other)
  Sender: FDA-Public Use
  Company Number: US-AMGEN-USASP2012044131

PATIENT
  Age: 60 Year
  Sex: Female
  Weight: 72.562 kg

DRUGS (16)
  1. EPOGEN [Suspect]
     Dosage: 20000 IU, QWK
     Route: 058
     Dates: start: 20120511
  2. KLONOPIN [Concomitant]
     Dosage: 1 MG, QD
     Route: 048
  3. DIALYVITE WITH ZINC [Concomitant]
     Dosage: UNK UNK, QD
     Route: 048
  4. ZEMPLAR [Concomitant]
     Dosage: 1 MUG, QD
     Route: 048
  5. EPOGEN [Suspect]
     Dosage: 20000 IU/ML, UNK
     Route: 058
  6. SENSIPAR [Concomitant]
     Indication: PRODUCT USED FOR UNKNOWN INDICATION
     Dosage: 30 MG, QD
     Route: 048
  7. LYRICA [Concomitant]
     Dosage: 50 MG, QD
     Route: 048
  8. EPOGEN [Suspect]
     Dosage: 10000 IU/KG, QWK
     Dates: start: 20110701
  9. ULTRAM [Concomitant]
     Dosage: 50 MG, BID
     Route: 048
  10. COREG [Concomitant]
     Dosage: 25 MG, BID
     Route: 048
  11. ZYLOPRIM [Concomitant]
     Dosage: 100 MG, QD
     Route: 048
  12. RENVELA [Concomitant]
     Dosage: 1600 MG, TID
     Route: 048
  13. EPOGEN [Suspect]
     Indication: RENAL FAILURE CHRONIC
     Dosage: 4000 IU, QWK
     Dates: start: 20100517
  14. CAPOTEN [Concomitant]
     Dosage: 12.5 MG, UNK
     Route: 048
  15. PRAVACHOL [Concomitant]
     Dosage: 20 MG, QD
     Route: 048
  16. RENVELA [Concomitant]
     Dosage: 800 MG, TID
     Route: 048

REACTIONS (2)
  - ANAEMIA [None]
  - THERAPEUTIC RESPONSE DECREASED [None]
